FAERS Safety Report 6899675-7 (Version None)
Quarter: 2010Q3

REPORT INFORMATION
  Report Type: 
  Country: None (occurrence: None)
  Receive Date: 20100803
  Receipt Date: 20100719
  Transmission Date: 20110219
  Serious: Yes (Other)
  Sender: FDA-Public Use
  Company Number: AU-CELGENEUS-008-20785-10071185

PATIENT
  Sex: Male

DRUGS (4)
  1. THALIDOMIDE [Suspect]
     Route: 048
     Dates: start: 20090901, end: 20100323
  2. CYCLOPHOSPHAMIDE [Concomitant]
     Route: 065
     Dates: start: 20091224
  3. DEXAMETHASONE [Concomitant]
     Route: 065
     Dates: start: 20091224
  4. CLEXANE [Concomitant]
     Route: 065
     Dates: start: 20091201

REACTIONS (7)
  - BONE PAIN [None]
  - DISEASE PROGRESSION [None]
  - HEPATIC LESION [None]
  - MASS [None]
  - MYALGIA [None]
  - PERIPHERAL SENSORY NEUROPATHY [None]
  - TESTICULAR MASS [None]
